FAERS Safety Report 8914479 (Version 1)
Quarter: 2012Q4

REPORT INFORMATION
  Report Type: 
  Country: IT (occurrence: IT)
  Receive Date: 20121119
  Receipt Date: 20121119
  Transmission Date: 20130627
  Serious: Yes (Hospitalization)
  Sender: FDA-Public Use
  Company Number: IT-ABBOTT-12P-083-1007749-00

PATIENT
  Age: 65 Year
  Sex: Male

DRUGS (3)
  1. AKINETON [Suspect]
     Indication: PARKINSON^S DISEASE
     Dosage: ^4 mg prolonged-released tablets^ 50 tablets
     Route: 048
     Dates: start: 20121020, end: 20121027
  2. SINEMET [Concomitant]
     Indication: PRODUCT USED FOR UNKNOWN INDICATION
     Dosage: 100 MG+25 MG
  3. MADOPAR [Concomitant]
     Indication: PRODUCT USED FOR UNKNOWN INDICATION
     Dosage: ^200 MG+ 50 MG TABLETS^ 50 TABLETS

REACTIONS (4)
  - Anuria [Recovering/Resolving]
  - Blood creatinine increased [Recovering/Resolving]
  - Metabolic acidosis [Recovering/Resolving]
  - Renal failure acute [Recovering/Resolving]
